FAERS Safety Report 4295727-9 (Version None)
Quarter: 2004Q1

REPORT INFORMATION
  Report Type: 
  Country: None (occurrence: None)
  Receive Date: 20040216
  Receipt Date: 20031020
  Transmission Date: 20041129
  Serious: No
  Sender: FDA-Public Use
  Company Number: US-GLAXOSMITHKLINE-A0430891A

PATIENT
  Age: 53 Year
  Sex: Male

DRUGS (6)
  1. LAMICTAL [Suspect]
     Indication: BIPOLAR DISORDER
     Dosage: 100MG TWICE PER DAY
     Route: 048
     Dates: start: 20030401
  2. LITHIUM CARBONATE [Suspect]
     Route: 048
  3. ZESTRIL [Concomitant]
  4. TOPAMAX [Concomitant]
  5. SYNTHROID [Concomitant]
  6. PRAVACHOL [Concomitant]

REACTIONS (2)
  - NASAL CONGESTION [None]
  - RHINITIS [None]
